FAERS Safety Report 4448451-3 (Version None)
Quarter: 2004Q3

REPORT INFORMATION
  Report Type: 
  Country: None (occurrence: None)
  Receive Date: 20040909
  Receipt Date: 20040825
  Transmission Date: 20050211
  Serious: Yes (Hospitalization)
  Sender: FDA-Public Use
  Company Number: 04P-107-0266064-00

PATIENT
  Age: 41 Year
  Sex: Male
  Weight: 57.1 kg

DRUGS (14)
  1. KALETRA [Suspect]
     Indication: HIV INFECTION
     Dosage: 3 CAPSULE, 2 IN 1 D, PER ORAL
     Route: 048
     Dates: start: 20040226
  2. FLUCONAZOLE [Concomitant]
  3. DAPSONE [Concomitant]
  4. ISONIAZID [Concomitant]
  5. OMEPRAZOLE [Concomitant]
  6. EPOGEN [Concomitant]
  7. FILGASTRIM [Concomitant]
  8. DANAZOL [Concomitant]
  9. DIDANOSINE [Concomitant]
  10. ABACAVIR [Concomitant]
  11. RITONAVIR [Concomitant]
  12. T-20 [Concomitant]
  13. SAQUINAVIR [Concomitant]
  14. LAMIVUDINE [Concomitant]

REACTIONS (4)
  - BONE MARROW DEPRESSION [None]
  - DYSPNOEA [None]
  - MALAISE [None]
  - RASH [None]
